FAERS Safety Report 6050916-8 (Version None)
Quarter: 2009Q1

REPORT INFORMATION
  Report Type: 
  Country: None (occurrence: None)
  Receive Date: 20090126
  Receipt Date: 20080428
  Transmission Date: 20090719
  Serious: Yes (Other)
  Sender: FDA-Public Use
  Company Number: US-TYCO HEALTHCARE/MALLINCKRODT-T200800685

PATIENT

DRUGS (3)
  1. OPTIRAY 300 [Suspect]
     Indication: COMPUTERISED TOMOGRAM
     Dosage: 100 ML, SINGLE
     Route: 042
     Dates: start: 20080410, end: 20080410
  2. SYNTHROID [Concomitant]
     Dosage: 50 MG, QD
     Route: 048
  3. PEPCID [Concomitant]
     Dosage: UNK, QD
     Route: 048

REACTIONS (3)
  - DRY THROAT [None]
  - SNEEZING [None]
  - THROAT TIGHTNESS [None]
